FAERS Safety Report 16308975 (Version 1)
Quarter: 2019Q2

REPORT INFORMATION
  Report Type: Spontaneous
  Country: US (occurrence: US)
  Receive Date: 20190514
  Receipt Date: 20190514
  Transmission Date: 20190711
  Serious: No
  Sender: FDA-Public Use
  Company Number: US-PFIZER INC-2018013234

PATIENT
  Age: 56 Year
  Sex: Female
  Weight: 54.42 kg

DRUGS (4)
  1. DOCETAXEL. [Suspect]
     Active Substance: DOCETAXEL
     Indication: BREAST CANCER
     Dosage: 115 MG, EVERY 3 WEEKS
     Dates: start: 20120816, end: 20121129
  2. TRASTUZUMAB. [Concomitant]
     Active Substance: TRASTUZUMAB
  3. PARAPLATIN [Concomitant]
     Active Substance: CARBOPLATIN
  4. TAXOL [Concomitant]
     Active Substance: PACLITAXEL

REACTIONS (5)
  - Hair texture abnormal [Not Recovered/Not Resolved]
  - Hair colour changes [Not Recovered/Not Resolved]
  - Madarosis [Not Recovered/Not Resolved]
  - Hair disorder [Not Recovered/Not Resolved]
  - Alopecia [Not Recovered/Not Resolved]

NARRATIVE: CASE EVENT DATE: 20130105
